FAERS Safety Report 16363822 (Version 2)
Quarter: 2019Q3

REPORT INFORMATION
  Report Type: Report from Study
  Country: US (occurrence: US)
  Receive Date: 20190528
  Receipt Date: 20190730
  Transmission Date: 20191004
  Serious: No
  Sender: FDA-Public Use
  Company Number: PHEH2019US022359

PATIENT
  Age: 53 Year
  Sex: Female

DRUGS (1)
  1. COSENTYX [Suspect]
     Active Substance: SECUKINUMAB
     Indication: PSORIASIS
     Dosage: 300 MG, QMO
     Route: 058

REACTIONS (2)
  - Varicose vein [Recovering/Resolving]
  - Injection site bruising [Recovering/Resolving]

NARRATIVE: CASE EVENT DATE: 20190517
